FAERS Safety Report 9882977 (Version 1)
Quarter: 2014Q1

REPORT INFORMATION
  Report Type: Spontaneous
  Country: FR (occurrence: None)
  Receive Date: 20140204
  Receipt Date: 20140204
  Transmission Date: 20141002
  Serious: Yes (Other)
  Sender: FDA-Public Use
  Company Number: AXC-2014-000073

PATIENT
  Age: 39 Year
  Sex: Female

DRUGS (1)
  1. PYLERA [Suspect]
     Indication: HELICOBACTER GASTRITIS
     Route: 048
     Dates: start: 20131112, end: 20131122

REACTIONS (5)
  - Dysgeusia [None]
  - Nausea [None]
  - Headache [None]
  - Paraesthesia [None]
  - Myalgia [None]
